FAERS Safety Report 14648892 (Version 1)
Quarter: 2018Q1

REPORT INFORMATION
  Report Type: Spontaneous
  Country: BG (occurrence: BG)
  Receive Date: 20180316
  Receipt Date: 20180316
  Transmission Date: 20180509
  Serious: Yes (Hospitalization)
  Sender: FDA-Public Use
  Company Number: BG-JNJFOC-20180318157

PATIENT
  Age: 78 Year
  Sex: Male
  Weight: 89 kg

DRUGS (7)
  1. SYMBICORT [Concomitant]
     Active Substance: BUDESONIDE\FORMOTEROL FUMARATE DIHYDRATE
     Indication: THROMBOSIS PROPHYLAXIS
     Route: 065
  2. XARELTO [Suspect]
     Active Substance: RIVAROXABAN
     Indication: THROMBOSIS PROPHYLAXIS
     Route: 048
  3. TORASEMIDE [Concomitant]
     Active Substance: TORSEMIDE
     Route: 065
  4. BISOPROLOL [Concomitant]
     Active Substance: BISOPROLOL
     Route: 065
  5. OXYGEN. [Concomitant]
     Active Substance: OXYGEN
     Route: 065
  6. SULFAMETHIZOLE [Concomitant]
     Active Substance: SULFAMETHIZOLE
     Indication: HYPERTHYROIDISM
     Dosage: 5 MG, UNK
     Route: 065
  7. VENTOLIN [Concomitant]
     Active Substance: ALBUTEROL SULFATE
     Route: 055

REACTIONS (2)
  - Prostate cancer [Recovered/Resolved]
  - Haematuria [Unknown]
